FAERS Safety Report 13926810 (Version 1)
Quarter: 2017Q3

REPORT INFORMATION
  Report Type: Spontaneous
  Country: DE (occurrence: DE)
  Receive Date: 20170831
  Receipt Date: 20170831
  Transmission Date: 20171127
  Serious: Yes (Other)
  Sender: FDA-Public Use
  Company Number: DE-BAUSCH-BL-2017-007500

PATIENT
  Sex: Male
  Weight: 85 kg

DRUGS (3)
  1. ALLOPURINOL. [Concomitant]
     Active Substance: ALLOPURINOL
     Indication: PRODUCT USED FOR UNKNOWN INDICATION
  2. RAMIPRIL. [Concomitant]
     Active Substance: RAMIPRIL
     Indication: PRODUCT USED FOR UNKNOWN INDICATION
  3. ZYCLARA [Suspect]
     Active Substance: IMIQUIMOD
     Indication: NEOPLASM MALIGNANT
     Route: 061
     Dates: start: 20170101, end: 20170114

REACTIONS (13)
  - Dizziness [Not Recovered/Not Resolved]
  - Cardiovascular disorder [Unknown]
  - Chills [Unknown]
  - Hyperhidrosis [Unknown]
  - Depression [Recovered/Resolved]
  - Apathy [Recovered/Resolved]
  - Thinking abnormal [Recovered/Resolved]
  - Apallic syndrome [Recovered/Resolved]
  - Pain in extremity [Unknown]
  - Arthralgia [Unknown]
  - Suicidal ideation [Recovered/Resolved]
  - General physical health deterioration [Unknown]
  - Erythema [Unknown]

NARRATIVE: CASE EVENT DATE: 2017
